FAERS Safety Report 10109417 (Version 1)
Quarter: 2014Q2

REPORT INFORMATION
  Report Type: Spontaneous
  Country: US (occurrence: None)
  Receive Date: 20140424
  Receipt Date: 20140424
  Transmission Date: 20141212
  Serious: Yes (Life-Threatening, Hospitalization, Disabling)
  Sender: FDA-Public Use
  Company Number: None

PATIENT
  Age: 52 Year
  Sex: Female
  Weight: 72.58 kg

DRUGS (1)
  1. RIFAMPIN [Suspect]
     Indication: BARTONELLOSIS
     Dosage: 3 PILLS TWICE DAILY TAKEN BY MOUTH
     Route: 048

REACTIONS (5)
  - Pancreatitis [None]
  - Asthenia [None]
  - Fatigue [None]
  - Diarrhoea [None]
  - Nausea [None]
